FAERS Safety Report 4550690-8 (Version None)
Quarter: 2004Q4

REPORT INFORMATION
  Report Type: 
  Country: None (occurrence: None)
  Receive Date: 20041217
  Receipt Date: 20041029
  Transmission Date: 20050328
  Serious: No
  Sender: FDA-Public Use
  Company Number: 2004-BP-10962BP(0)

PATIENT
  Age: 58 Year
  Sex: Female

DRUGS (6)
  1. SPIRIVA [Suspect]
     Indication: CHRONIC OBSTRUCTIVE AIRWAYS DISEASE
     Dosage: 18 MCG (18 MCG 1 IN 1 D) IH
     Route: 055
     Dates: start: 20040918
  2. FLONASE [Concomitant]
  3. SINGULAIR (MONTELEUKAST) [Concomitant]
  4. TRIAMTERENE(TRIAMTERENE) [Concomitant]
  5. NEXIUM [Concomitant]
  6. ADVIL [Concomitant]

REACTIONS (2)
  - AGEUSIA [None]
  - DRUG INEFFECTIVE [None]
